FAERS Safety Report 25544396 (Version 3)
Quarter: 2025Q3

REPORT INFORMATION
  Report Type: Spontaneous
  Country: US (occurrence: US)
  Receive Date: 20250711
  Receipt Date: 20250804
  Transmission Date: 20251020
  Serious: Yes (Other)
  Sender: PFIZER
  Company Number: US-PFIZER INC-PV202300123252

PATIENT
  Age: 75 Year
  Sex: Male
  Weight: 112.5 kg

DRUGS (5)
  1. BRAFTOVI [Suspect]
     Active Substance: ENCORAFENIB
     Indication: Malignant melanoma
     Dosage: 450 MG, DAILY (TAKE 6 CAPSULE (450 MG TOTAL), TAKE IN THE EVENING)
     Route: 048
  2. BRAFTOVI [Suspect]
     Active Substance: ENCORAFENIB
     Dosage: 300 MG, DAILY (TAKE 4 CAPSULES (300 MG TOTAL) BY MOUTH DAILY. SWALLOW WHOLE)
     Route: 048
     Dates: start: 20250612
  3. MEKTOVI [Suspect]
     Active Substance: BINIMETINIB
     Indication: Malignant melanoma
     Dosage: 45 MG, 2X/DAY
     Route: 048
  4. MEKTOVI [Suspect]
     Active Substance: BINIMETINIB
     Dosage: 15 MG, 3X/DAY (TAKE 3 TABLETS BY MOUTH 2 X PER DAY (45 MG TOTAL))
     Route: 048
  5. MEKTOVI [Suspect]
     Active Substance: BINIMETINIB
     Dosage: 15 MG, 2X/DAY (TAKE 2 TABLETS (30 MG TOTAL) BY MOUTH 2 TIMES A DAY. SWALLOW WHOLE)
     Route: 048
     Dates: start: 20250612

REACTIONS (1)
  - Ileal ulcer [Unknown]

NARRATIVE: CASE EVENT DATE: 20250101
